FAERS Safety Report 8690876 (Version 3)
Quarter: 2012Q4

REPORT INFORMATION
  Report Type: 
  Country: JP (occurrence: JP)
  Receive Date: 20120730
  Receipt Date: 20120928
  Transmission Date: 20130627
  Serious: Yes (Other)
  Sender: FDA-Public Use
  Company Number: JP-AMGEN-JPNSP2012046549

PATIENT
  Age: 85 Year
  Sex: Male
  Weight: 49 kg

DRUGS (15)
  1. RANMARK [Suspect]
     Indication: PROSTATE CANCER
     Dosage: 120 mg, qd
     Route: 058
     Dates: start: 20120425, end: 20120620
  2. ASPARA-CA [Concomitant]
     Indication: PROSTATE CANCER
     Dosage: 200 mg, tid
     Route: 048
     Dates: start: 20120425, end: 20120620
  3. ALFAROL [Concomitant]
     Indication: PROSTATE CANCER
     Route: 048
     Dates: start: 20120425, end: 20120620
  4. BUP-4 [Concomitant]
     Indication: DYSURIA
     Route: 048
     Dates: start: 20070816
  5. BUP-4 [Concomitant]
     Indication: DYSURIA
  6. FLIVAS [Concomitant]
     Indication: DYSURIA
     Route: 048
     Dates: start: 20090106
  7. FLIVAS [Concomitant]
     Indication: DYSURIA
  8. ESTRACYT [Concomitant]
     Indication: PROSTATE CANCER
     Route: 048
     Dates: start: 20110711
  9. PURSENNID [Concomitant]
     Indication: CONSTIPATION
     Route: 048
     Dates: start: 20120326
  10. TAKEPRON OD [Concomitant]
     Indication: GASTROOESOPHAGEAL REFLUX DISEASE
     Route: 048
     Dates: start: 20110711
  11. LASIX [Concomitant]
     Indication: ESSENTIAL HYPERTENSION
     Route: 048
     Dates: start: 20110808
  12. FEBURIC [Concomitant]
     Indication: HYPERURICAEMIA
     Route: 048
     Dates: start: 20120514
  13. CALBLOCK [Concomitant]
     Indication: ESSENTIAL HYPERTENSION
     Route: 048
     Dates: start: 20120514
  14. WYTENS [Concomitant]
     Indication: ESSENTIAL HYPERTENSION
     Route: 048
     Dates: start: 20120618
  15. BAYASPIRIN [Concomitant]
     Indication: THROMBOSIS PROPHYLAXIS
     Route: 048
     Dates: start: 20110711

REACTIONS (1)
  - Renal impairment [Recovering/Resolving]
